FAERS Safety Report 13124891 (Version 1)
Quarter: 2017Q1

REPORT INFORMATION
  Report Type: Spontaneous
  Country: US (occurrence: US)
  Receive Date: 20170118
  Receipt Date: 20170118
  Transmission Date: 20170428
  Serious: No
  Sender: FDA-Public Use
  Company Number: US-SERB S.A.S.-1062101

PATIENT
  Age: 69 Year
  Sex: Male
  Weight: 120 kg

DRUGS (8)
  1. HYDRALAZINE [Concomitant]
     Active Substance: HYDRALAZINE HYDROCHLORIDE
  2. CYANOKIT [Suspect]
     Active Substance: HYDROXOCOBALAMIN
     Indication: VASOPLEGIA SYNDROME
     Route: 042
  3. METFORMIN [Concomitant]
     Active Substance: METFORMIN HYDROCHLORIDE
  4. WARFARIN [Concomitant]
     Active Substance: WARFARIN
  5. BUDESONIDE , FORMETEROL [Concomitant]
  6. LISINOPRIL. [Concomitant]
     Active Substance: LISINOPRIL
  7. BISOPROLOL FUMARATE. [Concomitant]
     Active Substance: BISOPROLOL FUMARATE
  8. TIOTROPIUM [Concomitant]
     Active Substance: TIOTROPIUM

REACTIONS (4)
  - Off label use [Recovered/Resolved]
  - Vascular resistance systemic increased [Recovered/Resolved]
  - Mean arterial pressure increased [Recovered/Resolved]
  - Cardiac index decreased [Recovered/Resolved]
